FAERS Safety Report 6511839-0 (Version None)
Quarter: 2009Q4

REPORT INFORMATION
  Report Type: 
  Country: None (occurrence: None)
  Receive Date: 20091222
  Receipt Date: 20091214
  Transmission Date: 20100525
  Serious: Yes (Disabling)
  Sender: FDA-Public Use
  Company Number: US-SANOFI-AVENTIS-A03200905023

PATIENT
  Age: 69 Year
  Sex: Male

DRUGS (1)
  1. PLAVIX [Suspect]
     Indication: POOR PERIPHERAL CIRCULATION
     Dosage: UNK
     Route: 048
     Dates: end: 20090916

REACTIONS (1)
  - LOCALISED INFECTION [None]
